FAERS Safety Report 10201588 (Version 1)
Quarter: 2014Q2

REPORT INFORMATION
  Report Type: Report from Study
  Country: CA (occurrence: CA)
  Receive Date: 20140528
  Receipt Date: 20140528
  Transmission Date: 20141212
  Serious: Yes (Hospitalization)
  Sender: FDA-Public Use
  Company Number: CA-JNJFOC-20140514169

PATIENT
  Sex: Female
  Weight: 67 kg

DRUGS (4)
  1. REMICADE [Suspect]
     Indication: CROHN^S DISEASE
     Dosage: 0,2,6 THEN EVERY 8 WEEKS
     Route: 042
     Dates: start: 200809
  2. QUESTRAN [Concomitant]
     Route: 065
  3. FLOVENT [Concomitant]
     Route: 065
  4. VENTOLIN [Concomitant]
     Route: 065

REACTIONS (2)
  - Small intestinal stenosis [Recovered/Resolved]
  - Anal abscess [Recovered/Resolved]
